FAERS Safety Report 11522178 (Version 1)
Quarter: 2015Q3

REPORT INFORMATION
  Report Type: Spontaneous
  Country: US (occurrence: US)
  Receive Date: 20150918
  Receipt Date: 20150918
  Transmission Date: 20151125
  Serious: No
  Sender: FDA-Public Use
  Company Number: US-ROCHE-756538

PATIENT
  Sex: Male
  Weight: 127 kg

DRUGS (4)
  1. PEGASYS [Suspect]
     Active Substance: PEGINTERFERON ALFA-2A
     Indication: HEPATITIS C
     Dosage: FORM:PRE FILLED SYRINGE
     Route: 058
  2. COPEGUS [Suspect]
     Active Substance: RIBAVIRIN
     Indication: HEPATITIS C
     Route: 048
  3. LISINOPRIL VS HCTZ [Concomitant]
     Dosage: TAKEN EVERY MORNING
     Route: 065
  4. AMITRIPTYLINE [Concomitant]
     Active Substance: AMITRIPTYLINE
     Dosage: FREQ NOT LEGIBLE
     Route: 065

REACTIONS (2)
  - Rash [Recovered/Resolved]
  - Skin ulcer [Not Recovered/Not Resolved]
